FAERS Safety Report 10238137 (Version 2)
Quarter: 2014Q2

REPORT INFORMATION
  Report Type: Spontaneous
  Country: JP (occurrence: JP)
  Receive Date: 20140616
  Receipt Date: 20140616
  Transmission Date: 20141212
  Serious: No
  Sender: FDA-Public Use
  Company Number: PHJP2014JP000840

PATIENT
  Age: 27 Year
  Sex: Female

DRUGS (3)
  1. TEGRETOL TAB 200MG [Suspect]
     Indication: CONVULSION PROPHYLAXIS
     Dosage: 400 MG, DAILY
     Route: 048
  2. ANAESTHETICS [Suspect]
  3. RITODRINE [Suspect]

REACTIONS (2)
  - Premature labour [Unknown]
  - Maternal exposure during pregnancy [Unknown]
